FAERS Safety Report 9061935 (Version 1)
Quarter: 2013Q1

REPORT INFORMATION
  Report Type: Spontaneous
  Country: US (occurrence: US)
  Receive Date: 20130129
  Receipt Date: 20130129
  Transmission Date: 20140127
  Serious: No
  Sender: FDA-Public Use
  Company Number: US-ASTRAZENECA-2013SE03154

PATIENT
  Age: 2 Month
  Sex: Male
  Weight: 4.1 kg

DRUGS (1)
  1. NEXIUM [Suspect]
     Indication: GASTROOESOPHAGEAL REFLUX DISEASE
     Route: 048
     Dates: start: 20121217, end: 20130102

REACTIONS (7)
  - Aphagia [Recovering/Resolving]
  - Developmental delay [Recovering/Resolving]
  - Screaming [Recovering/Resolving]
  - Eructation [Recovering/Resolving]
  - Flatulence [Recovering/Resolving]
  - Insomnia [Recovering/Resolving]
  - Intentional drug misuse [Unknown]
